FAERS Safety Report 25676169 (Version 1)
Quarter: 2025Q3

REPORT INFORMATION
  Report Type: Spontaneous
  Country: US (occurrence: US)
  Receive Date: 20250813
  Receipt Date: 20250813
  Transmission Date: 20251021
  Serious: Yes (Other)
  Sender: ANI
  Company Number: US-ANIPHARMA-2024-US-059040

PATIENT
  Sex: Female

DRUGS (2)
  1. ANASTROZOLE [Suspect]
     Active Substance: ANASTROZOLE
     Indication: Product used for unknown indication
     Dates: start: 20180505
  2. IBRANCE [Suspect]
     Active Substance: PALBOCICLIB
     Route: 048
     Dates: start: 20180502

REACTIONS (6)
  - Leukopenia [Unknown]
  - Epistaxis [Unknown]
  - Hot flush [Unknown]
  - Bone pain [Unknown]
  - Lacrimation increased [Unknown]
  - Temperature intolerance [Unknown]
